FAERS Safety Report 9904769 (Version 1)
Quarter: 2014Q1

REPORT INFORMATION
  Report Type: Spontaneous
  Country: US (occurrence: US)
  Receive Date: 20140218
  Receipt Date: 20140218
  Transmission Date: 20141002
  Serious: No
  Sender: FDA-Public Use
  Company Number: US-BAYER-2014-025139

PATIENT
  Sex: Female
  Weight: 62.13 kg

DRUGS (2)
  1. ALEVE TABLET [Suspect]
     Indication: MYALGIA
     Dosage: 1 DF, PRN
     Route: 048
     Dates: start: 201401, end: 20140210
  2. ALEVE TABLET [Suspect]
     Indication: MYALGIA
     Dosage: HALF DF, UNK
     Route: 048

REACTIONS (1)
  - Urine odour abnormal [Recovered/Resolved]
